FAERS Safety Report 5043304-4 (Version None)
Quarter: 2006Q2

REPORT INFORMATION
  Report Type: 
  Country: None (occurrence: None)
  Receive Date: 20060601
  Receipt Date: 20060301
  Transmission Date: 20061013
  Serious: No
  Sender: FDA-Public Use
  Company Number: 2006PV009494

PATIENT
  Age: 67 Year
  Sex: Male

DRUGS (2)
  1. BYETTA [Suspect]
     Indication: DIABETES MELLITUS NON-INSULIN-DEPENDENT
     Dosage: 5 MCG ;BID; SC
     Route: 058
     Dates: start: 20060223, end: 20060228
  2. ECOTRIN [Concomitant]

REACTIONS (3)
  - GINGIVAL BLEEDING [None]
  - INJECTION SITE BRUISING [None]
  - INJECTION SITE RASH [None]
